FAERS Safety Report 6704142-7 (Version None)
Quarter: 2010Q2

REPORT INFORMATION
  Report Type: 
  Country: None (occurrence: None)
  Receive Date: 20100430
  Receipt Date: 20100421
  Transmission Date: 20101027
  Serious: Yes (Other)
  Sender: FDA-Public Use
  Company Number: JP-PFIZER INC-2010039786

PATIENT
  Age: 40 Year
  Sex: Male

DRUGS (1)
  1. CABERGOLINE [Suspect]
     Indication: PROLACTIN-PRODUCING PITUITARY TUMOUR
     Dosage: 0.25 MG, WEEKLY
     Dates: start: 20081201

REACTIONS (1)
  - CEREBROSPINAL FLUID RHINORRHOEA [None]
